FAERS Safety Report 5451030-2 (Version None)
Quarter: 2007Q3

REPORT INFORMATION
  Report Type: 
  Country: None (occurrence: None)
  Receive Date: 20070802
  Receipt Date: 20070202
  Transmission Date: 20080115
  Serious: Yes (Other)
  Sender: FDA-Public Use
  Company Number: 34089

PATIENT
  Age: 43 Year
  Sex: Male

DRUGS (1)
  1. DACARBAZINE [Suspect]

REACTIONS (3)
  - DIARRHOEA [None]
  - INFECTION [None]
  - NAUSEA [None]
